FAERS Safety Report 13639212 (Version 1)
Quarter: 2017Q2

REPORT INFORMATION
  Report Type: Spontaneous
  Country: US (occurrence: US)
  Receive Date: 20170609
  Receipt Date: 20170609
  Transmission Date: 20170830
  Serious: No
  Sender: FDA-Public Use
  Company Number: US-ROCHE-1018412

PATIENT
  Age: 36 Year
  Sex: Male

DRUGS (1)
  1. KLONOPIN [Suspect]
     Active Substance: CLONAZEPAM
     Indication: TREMOR
     Route: 048

REACTIONS (4)
  - Nausea [Recovering/Resolving]
  - Unevaluable event [Recovering/Resolving]
  - Fatigue [Recovering/Resolving]
  - Mood swings [Unknown]
